FAERS Safety Report 7686384-X (Version None)
Quarter: 2011Q3

REPORT INFORMATION
  Report Type: 
  Country: None (occurrence: None)
  Receive Date: 20110816
  Receipt Date: 20110805
  Transmission Date: 20111222
  Serious: Yes (Hospitalization, Other)
  Sender: FDA-Public Use
  Company Number: IE-NOVOPROD-328221

PATIENT

DRUGS (3)
  1. LEVOTHYROXINE SODIUM [Suspect]
     Dosage: 50 MCG/75 MCG ALTERNATE DAYS
     Route: 048
     Dates: start: 20110301
  2. LEVOTHYROXINE SODIUM [Suspect]
     Dosage: 50 UG, QD
     Route: 048
     Dates: start: 20100901
  3. NORDITROPIN [Suspect]
     Indication: GROWTH HORMONE DEFICIENCY
     Dosage: 0.5 (UNIT UNSPECFIED)
     Route: 058
     Dates: start: 20100501, end: 20110401

REACTIONS (1)
  - MEDULLOBLASTOMA RECURRENT [None]
